FAERS Safety Report 24249079 (Version 1)
Quarter: 2024Q3

REPORT INFORMATION
  Report Type: Spontaneous
  Country: SI (occurrence: SI)
  Receive Date: 20240826
  Receipt Date: 20240826
  Transmission Date: 20241017
  Serious: Yes (Life-Threatening, Other)
  Sender: BAYER
  Company Number: None

PATIENT
  Age: 62 Year
  Sex: Female

DRUGS (1)
  1. ULTRAVIST [Suspect]
     Active Substance: IOPROMIDE
     Indication: Computerised tomogram abdomen
     Dosage: STRENGHT: 370 MG/MLDOSE: 100 ML
     Route: 042
     Dates: start: 20240814, end: 20240814

REACTIONS (4)
  - Pharyngeal swelling [Unknown]
  - Choking [Unknown]
  - Vertigo [Unknown]
  - Urticaria [Unknown]

NARRATIVE: CASE EVENT DATE: 20240814
